FAERS Safety Report 13960234 (Version 2)
Quarter: 2018Q2

REPORT INFORMATION
  Report Type: Spontaneous
  Country: IT (occurrence: IT)
  Receive Date: 20170912
  Receipt Date: 20180629
  Transmission Date: 20180711
  Serious: Yes (Hospitalization)
  Sender: FDA-Public Use
  Company Number: IT-ROCHE-1992047

PATIENT
  Sex: Female

DRUGS (4)
  1. ZYLORIC [Concomitant]
     Active Substance: ALLOPURINOL
     Route: 048
  2. GAZYVARO [Suspect]
     Active Substance: OBINUTUZUMAB
     Indication: CHRONIC LYMPHOCYTIC LEUKAEMIA
     Route: 041
     Dates: start: 20160624, end: 20160624
  3. PANTOPRAZOLE SODIUM. [Concomitant]
     Active Substance: PANTOPRAZOLE SODIUM
  4. ANTRA [Concomitant]
     Active Substance: OMEPRAZOLE
     Route: 042

REACTIONS (1)
  - Urticaria [Recovered/Resolved]
